FAERS Safety Report 17272660 (Version 1)
Quarter: 2020Q1

REPORT INFORMATION
  Report Type: Spontaneous
  Country: US (occurrence: US)
  Receive Date: 20200115
  Receipt Date: 20200115
  Transmission Date: 20200409
  Serious: No
  Sender: FDA-Public Use
  Company Number: US-PFIZER INC-2020013165

PATIENT
  Sex: Male

DRUGS (1)
  1. NICOTROL [Suspect]
     Active Substance: NICOTINE
     Dosage: UNK

REACTIONS (1)
  - Drug intolerance [Unknown]
